FAERS Safety Report 9401391 (Version 1)
Quarter: 2013Q3

REPORT INFORMATION
  Report Type: Spontaneous
  Country: CN (occurrence: CN)
  Receive Date: 20130715
  Receipt Date: 20130715
  Transmission Date: 20140515
  Serious: Yes (Other)
  Sender: FDA-Public Use
  Company Number: CN-BAXTER-2013BAX026730

PATIENT
  Age: 28 Year
  Sex: Male
  Weight: 72 kg

DRUGS (4)
  1. 10% GLUCOSE INJECTION [Suspect]
     Indication: UPPER RESPIRATORY TRACT INFECTION
     Route: 042
     Dates: start: 20130318, end: 20130318
  2. PAZUFLOXACIN [Suspect]
     Indication: UPPER RESPIRATORY TRACT INFECTION
     Route: 042
     Dates: start: 20130318, end: 20130318
  3. SODIUM CHLORIDE [Concomitant]
     Indication: UPPER RESPIRATORY TRACT INFECTION
     Route: 042
  4. VITAMIN C [Concomitant]
     Indication: UPPER RESPIRATORY TRACT INFECTION
     Route: 042
     Dates: start: 20120318, end: 20120318

REACTIONS (1)
  - Anaphylactic reaction [Recovering/Resolving]
